FAERS Safety Report 5158178-0 (Version None)
Quarter: 2006Q4

REPORT INFORMATION
  Report Type: 
  Country: None (occurrence: None)
  Receive Date: 20061120
  Receipt Date: 20061120
  Transmission Date: 20070319
  Serious: Yes (Other)
  Sender: FDA-Public Use
  Company Number: None

PATIENT
  Age: 2 Year
  Sex: Male
  Weight: 14.0615 kg

DRUGS (1)
  1. CLARITIN [Suspect]
     Indication: HYPERSENSITIVITY
     Dosage: 1/2 TSP DAILY PO
     Route: 048

REACTIONS (5)
  - CONDITION AGGRAVATED [None]
  - COUGH [None]
  - RASH [None]
  - RHINORRHOEA [None]
  - VOMITING [None]
